FAERS Safety Report 5042056-1 (Version None)
Quarter: 2006Q2

REPORT INFORMATION
  Report Type: 
  Country: None (occurrence: None)
  Receive Date: 20060630
  Receipt Date: 20060622
  Transmission Date: 20061013
  Serious: Yes (Hospitalization)
  Sender: FDA-Public Use
  Company Number: 2006BI000709

PATIENT
  Age: 56 Year
  Sex: Female
  Weight: 110 kg

DRUGS (2)
  1. AVONEX [Suspect]
     Indication: MULTIPLE SCLEROSIS
     Dosage: 30 UG QW IM
     Route: 030
     Dates: start: 19981022, end: 20031001
  2. AVONEX [Suspect]
     Indication: MULTIPLE SCLEROSIS
     Dosage: 30 UG QW IM
     Route: 030
     Dates: start: 20031001

REACTIONS (5)
  - OSTEOARTHRITIS [None]
  - OVERWEIGHT [None]
  - POOR PERSONAL HYGIENE [None]
  - SCRATCH [None]
  - STAPHYLOCOCCAL SEPSIS [None]
